FAERS Safety Report 4925227-1 (Version None)
Quarter: 2006Q1

REPORT INFORMATION
  Report Type: 
  Country: None (occurrence: None)
  Receive Date: 20060228
  Receipt Date: 20051223
  Transmission Date: 20060701
  Serious: Yes (Death)
  Sender: FDA-Public Use
  Company Number: DK-NOVOPROD-250455

PATIENT
  Age: 75 Year
  Sex: Female
  Weight: 55 kg

DRUGS (5)
  1. NOVOSEVEN [Suspect]
     Indication: ACQUIRED HAEMOPHILIA
     Dosage: 2.4 MG, QD
     Route: 042
     Dates: start: 20040813, end: 20040813
  2. NOVOSEVEN [Suspect]
     Dosage: 2.4 MG, QD
     Route: 042
     Dates: start: 20040826, end: 20040826
  3. FACTOR VIII, RECOMBINANT [Concomitant]
     Indication: ACQUIRED HAEMOPHILIA
     Dosage: 4000 IU, QD
     Route: 042
     Dates: start: 20040811, end: 20040811
  4. FACTOR VIII, RECOMBINANT [Concomitant]
     Dosage: 4000 IU, QD
     Route: 042
     Dates: start: 20040826, end: 20040826
  5. PREDNISOLONE [Concomitant]
     Dosage: 60 MG, QD
     Dates: start: 20040811

REACTIONS (1)
  - DEATH [None]
